FAERS Safety Report 9238103 (Version 2)
Quarter: 2013Q2

REPORT INFORMATION
  Report Type: Spontaneous
  Country: US (occurrence: None)
  Receive Date: 20130415
  Receipt Date: 20130416
  Transmission Date: 20140414
  Serious: Yes (Hospitalization, Other)
  Sender: FDA-Public Use
  Company Number: 2013P1004466

PATIENT
  Age: 59 Year
  Sex: Female
  Weight: 46.27 kg

DRUGS (7)
  1. PARNATE TABLETS [Suspect]
     Indication: DEPRESSION
     Route: 048
     Dates: start: 1978
  2. PARNATE TABLETS [Suspect]
     Indication: HALLUCINATION
     Route: 048
     Dates: start: 1978
  3. PROZAC [Suspect]
  4. NARDIL [Suspect]
  5. VICODIN [Concomitant]
  6. KLONOPIN [Concomitant]
  7. UNSPECIFIED ANTIHISTAMINE [Concomitant]

REACTIONS (17)
  - Hypertension [None]
  - Loss of consciousness [None]
  - Headache [None]
  - Cholesteatoma [None]
  - Dyspnoea [None]
  - Crying [None]
  - Feeling of despair [None]
  - Suicidal ideation [None]
  - Weight decreased [None]
  - Wrist fracture [None]
  - Fall [None]
  - Nerve injury [None]
  - Rhinorrhoea [None]
  - Furuncle [None]
  - Iatrogenic injury [None]
  - Local swelling [None]
  - Joint swelling [None]
